FAERS Safety Report 4526255-0 (Version None)
Quarter: 2004Q4

REPORT INFORMATION
  Report Type: 
  Country: None (occurrence: None)
  Receive Date: 20041210
  Receipt Date: 20041129
  Transmission Date: 20050328
  Serious: Yes (Hospitalization)
  Sender: FDA-Public Use
  Company Number: 2004CG02398

PATIENT
  Age: 76 Year
  Sex: Female
  Weight: 92 kg

DRUGS (11)
  1. HYTACAND [Suspect]
     Indication: ESSENTIAL HYPERTENSION
     Dosage: 1 DF DAILY PO
     Route: 048
     Dates: end: 20040818
  2. FUROSEMIDE [Suspect]
     Indication: ESSENTIAL HYPERTENSION
     Dosage: 1 DF DAILY PO
     Route: 048
     Dates: end: 20040818
  3. DI-ANTALVIC [Suspect]
     Dosage: 6 DF DAILY PO
     Route: 048
     Dates: start: 20040803, end: 20040818
  4. NON STEROID ANTIINFLAMMATORY DRUG [Suspect]
     Indication: BACK PAIN
     Dates: start: 20040701, end: 20040818
  5. FELODIPINE [Concomitant]
  6. CORDARONE [Concomitant]
  7. PREVISCAN [Concomitant]
  8. ALLOPURINOL [Concomitant]
  9. TROXERUTINE [Concomitant]
  10. DOLIPRANE [Concomitant]
  11. ZAMUDOL [Concomitant]

REACTIONS (2)
  - DRUG INTERACTION [None]
  - RENAL FAILURE ACUTE [None]
